FAERS Safety Report 10778663 (Version 2)
Quarter: 2015Q1

REPORT INFORMATION
  Report Type: Spontaneous
  Country: TW (occurrence: TW)
  Receive Date: 20150210
  Receipt Date: 20150225
  Transmission Date: 20150721
  Serious: Yes (Other)
  Sender: FDA-Public Use
  Company Number: TW-AMGEN-TWNSP2015011505

PATIENT
  Age: 57 Year
  Sex: Male

DRUGS (1)
  1. ENBREL [Suspect]
     Active Substance: ETANERCEPT
     Indication: PSORIASIS
     Dosage: 25 MG, 2X/WEEK
     Route: 058
     Dates: start: 20121206, end: 20150120

REACTIONS (2)
  - Road traffic accident [Recovering/Resolving]
  - Humerus fracture [Recovering/Resolving]

NARRATIVE: CASE EVENT DATE: 20150127
